FAERS Safety Report 18716700 (Version 7)
Quarter: 2021Q4

REPORT INFORMATION
  Report Type: Report from Study
  Country: GB (occurrence: GB)
  Receive Date: 20210108
  Receipt Date: 20211215
  Transmission Date: 20220303
  Serious: Yes (Hospitalization, Other)
  Sender: FDA-Public Use
  Company Number: GB-TAKEDA-2020TUS055782

PATIENT
  Age: 75 Year
  Sex: Female

DRUGS (1)
  1. IXAZOMIB [Suspect]
     Active Substance: IXAZOMIB
     Indication: Plasma cell myeloma
     Dosage: 3 MILLIGRAM
     Route: 048
     Dates: start: 20190419

REACTIONS (19)
  - Plasma cell myeloma [Unknown]
  - Blood cholesterol increased [Unknown]
  - Paraproteinaemia [Unknown]
  - Blood calcium increased [Unknown]
  - Malaise [Unknown]
  - Chills [Unknown]
  - Spinal disorder [Unknown]
  - Bone pain [Recovering/Resolving]
  - Fatigue [Recovering/Resolving]
  - Neuropathy peripheral [Not Recovered/Not Resolved]
  - Nausea [Recovering/Resolving]
  - Tooth infection [Unknown]
  - Dyspnoea exertional [Not Recovered/Not Resolved]
  - Localised infection [Unknown]
  - Breast pain [Unknown]
  - Oral pain [Not Recovered/Not Resolved]
  - Pain in extremity [Recovering/Resolving]
  - Diarrhoea [Not Recovered/Not Resolved]
  - Constipation [Unknown]

NARRATIVE: CASE EVENT DATE: 20210924
